FAERS Safety Report 17938662 (Version 3)
Quarter: 2020Q3

REPORT INFORMATION
  Report Type: Spontaneous
  Country: IT (occurrence: IT)
  Receive Date: 20200624
  Receipt Date: 20200724
  Transmission Date: 20201103
  Serious: Yes (Hospitalization, Other)
  Sender: FDA-Public Use
  Company Number: NVSC2020IT174732

PATIENT
  Age: 18 Year
  Sex: Male

DRUGS (2)
  1. AMOXICILLIN, CLAVULANIC ACID [Suspect]
     Active Substance: AMOXICILLIN\CLAVULANIC ACID
     Indication: UPPER RESPIRATORY TRACT INFECTION
     Dosage: 1 DF, BID, FILMCOATED ONE TABLET TWICE DAILY FOR 10 DAYS
     Route: 048
  2. AMOXICILLIN, CLAVULANIC ACID [Suspect]
     Active Substance: AMOXICILLIN\CLAVULANIC ACID
     Dosage: 875/125 MG
     Route: 048

REACTIONS (3)
  - Diarrhoea [Recovered/Resolved]
  - Colitis ischaemic [Unknown]
  - Abdominal pain [Recovered/Resolved]
